FAERS Safety Report 4632252-7 (Version None)
Quarter: 2005Q2

REPORT INFORMATION
  Report Type: 
  Country: None (occurrence: None)
  Receive Date: 20050411
  Receipt Date: 20050407
  Transmission Date: 20051028
  Serious: Yes (Death)
  Sender: FDA-Public Use
  Company Number: LS-BRISTOL-MYERS SQUIBB COMPANY-12927315

PATIENT
  Age: 38 Year
  Sex: Male

DRUGS (3)
  1. EFAVIRENZ [Suspect]
     Indication: HIV INFECTION
     Dates: start: 20050322, end: 20050403
  2. STAVUDINE [Suspect]
     Indication: HIV INFECTION
     Dates: start: 20050322, end: 20050403
  3. LAMIVUDINE [Suspect]
     Indication: HIV INFECTION
     Dates: start: 20050322, end: 20050403

REACTIONS (3)
  - DEHYDRATION [None]
  - DIARRHOEA [None]
  - VOMITING [None]
